FAERS Safety Report 4730172-0 (Version None)
Quarter: 2005Q3

REPORT INFORMATION
  Report Type: 
  Country: None (occurrence: None)
  Receive Date: 20050801
  Receipt Date: 20050722
  Transmission Date: 20060218
  Serious: Yes (Hospitalization)
  Sender: FDA-Public Use
  Company Number: US-GLAXOSMITHKLINE-A0567787C

PATIENT
  Age: 53 Year
  Sex: Female
  Weight: 69.1 kg

DRUGS (14)
  1. TOPOTECAN [Suspect]
     Dosage: .75MGM2 CYCLIC
     Route: 042
     Dates: start: 20020204
  2. CISPLATIN [Suspect]
     Dosage: 50MGM2 CYCLIC
     Route: 042
     Dates: start: 20020204
  3. ALLEGRA-D [Concomitant]
  4. FOLATE [Concomitant]
  5. VICODIN [Concomitant]
  6. ZOFRAN [Concomitant]
  7. AMBIEN [Concomitant]
  8. ATIVAN [Concomitant]
  9. SERZONE [Concomitant]
  10. ARAVA [Concomitant]
  11. DETROL [Concomitant]
  12. PREMARIN [Concomitant]
  13. ALTACE [Concomitant]
  14. CEFEPIME [Concomitant]

REACTIONS (6)
  - ANAEMIA [None]
  - FALL [None]
  - HEAD INJURY [None]
  - LOSS OF CONSCIOUSNESS [None]
  - SYNCOPE [None]
  - URINARY TRACT INFECTION [None]
